FAERS Safety Report 11076629 (Version 1)
Quarter: 2015Q2

REPORT INFORMATION
  Report Type: Spontaneous
  Country: FR (occurrence: FR)
  Receive Date: 20150429
  Receipt Date: 20150429
  Transmission Date: 20150821
  Serious: Yes (Hospitalization)
  Sender: FDA-Public Use
  Company Number: FR-SA-2015SA052294

PATIENT
  Age: 68 Year
  Sex: Male

DRUGS (18)
  1. NOVOMIX [Concomitant]
     Active Substance: INSULIN ASPART
     Dates: start: 1999
  2. ROCEPHIN [Suspect]
     Active Substance: CEFTRIAXONE SODIUM
     Indication: LUNG DISORDER
     Route: 042
     Dates: start: 20150307, end: 20150311
  3. SILODYX [Suspect]
     Active Substance: SILODOSIN
     Route: 065
     Dates: start: 201502, end: 20150322
  4. IMOVANE [Concomitant]
     Active Substance: ZOPICLONE
     Dates: end: 20150322
  5. AMOXICILLINE [Suspect]
     Active Substance: AMOXICILLIN
     Indication: LUNG DISORDER
     Route: 065
     Dates: start: 20150311
  6. AMOXICILLINE [Suspect]
     Active Substance: AMOXICILLIN
     Indication: LUNG DISORDER
     Route: 065
  7. SILODYX [Suspect]
     Active Substance: SILODOSIN
     Route: 065
  8. CONTRAMAL [Suspect]
     Active Substance: TRAMADOL HYDROCHLORIDE
     Route: 065
     Dates: start: 20150318, end: 20150322
  9. HUMIRA [Suspect]
     Active Substance: ADALIMUMAB
     Indication: RHEUMATOID ARTHRITIS
     Route: 065
     Dates: start: 20150226
  10. AZILECT [Concomitant]
     Active Substance: RASAGILINE MESYLATE
  11. KARDEGIC [Concomitant]
     Active Substance: ASPIRIN LYSINE
  12. NOVORAPID [Concomitant]
     Active Substance: INSULIN ASPART
     Dates: start: 1999
  13. LOVENOX [Suspect]
     Active Substance: ENOXAPARIN SODIUM
     Indication: THROMBOSIS PROPHYLAXIS
     Route: 065
     Dates: start: 20150318, end: 20150327
  14. METOJECT [Suspect]
     Active Substance: METHOTREXATE SODIUM
     Indication: RHEUMATOID ARTHRITIS
     Route: 065
     Dates: start: 20150305
  15. OLMETEC [Concomitant]
     Active Substance: OLMESARTAN MEDOXOMIL
  16. CYMBALTA [Concomitant]
     Active Substance: DULOXETINE HYDROCHLORIDE
     Dates: end: 20150322
  17. BROMAZEPAM [Concomitant]
     Active Substance: BROMAZEPAM
     Dates: end: 20150322
  18. MODOPAR [Concomitant]
     Active Substance: BENSERAZIDE HYDROCHLORIDE\LEVODOPA

REACTIONS (2)
  - Pneumonia [Recovered/Resolved]
  - Agranulocytosis [Recovering/Resolving]

NARRATIVE: CASE EVENT DATE: 20150307
